FAERS Safety Report 14278127 (Version 1)
Quarter: 2017Q4

REPORT INFORMATION
  Report Type: Spontaneous
  Country: US (occurrence: US)
  Receive Date: 20171212
  Receipt Date: 20171212
  Transmission Date: 20180321
  Serious: No
  Sender: FDA-Public Use
  Company Number: US-PFIZER INC-2017530258

PATIENT
  Age: 64 Year
  Sex: Female
  Weight: 82 kg

DRUGS (2)
  1. GABAPENTIN. [Suspect]
     Active Substance: GABAPENTIN
     Dosage: 3X/DAY, 350 MG TOTAL DAILY
  2. HYDROCODONE/ACETAMINOPHEN [Concomitant]
     Active Substance: ACETAMINOPHEN\HYDROCODONE
     Indication: PAIN
     Dosage: 6-325MG ,1 DF, EVERY 4-6 HOURS AS NEEDED
     Route: 048
     Dates: end: 201709

REACTIONS (4)
  - Weight increased [Unknown]
  - Condition aggravated [Unknown]
  - Fluid retention [Unknown]
  - Posture abnormal [Unknown]
